FAERS Safety Report 7212708-3 (Version None)
Quarter: 2011Q1

REPORT INFORMATION
  Report Type: 
  Country: None (occurrence: None)
  Receive Date: 20110106
  Receipt Date: 20101229
  Transmission Date: 20110831
  Serious: Yes (Other)
  Sender: FDA-Public Use
  Company Number: CZ-JNJFOC-20101206060

PATIENT
  Sex: Female

DRUGS (9)
  1. VITAMIN D [Concomitant]
     Indication: OSTEOPOROSIS
     Dosage: DOSE : 400 UI
  2. BETAMETHASONE [Concomitant]
     Indication: ASTHMA
  3. BETAXOLOL [Concomitant]
  4. METHYLPREDNISOLONE [Concomitant]
     Indication: RHEUMATOID ARTHRITIS
  5. REMICADE [Suspect]
     Indication: RHEUMATOID ARTHRITIS
     Route: 042
  6. DEXAMETHASONE [Concomitant]
     Indication: PREMEDICATION
     Route: 042
  7. CALCIUM [Concomitant]
     Indication: OSTEOPOROSIS
  8. DITHIADEN [Concomitant]
     Indication: PREMEDICATION
     Route: 042
  9. OMEPRAZOLE [Concomitant]

REACTIONS (3)
  - INFUSION RELATED REACTION [None]
  - FACE OEDEMA [None]
  - PALPITATIONS [None]
